FAERS Safety Report 23433519 (Version 1)
Quarter: 2024Q1

REPORT INFORMATION
  Report Type: Spontaneous
  Country: US (occurrence: US)
  Receive Date: 20240123
  Receipt Date: 20240123
  Transmission Date: 20240409
  Serious: No
  Sender: FDA-Public Use
  Company Number: US-ELI_LILLY_AND_COMPANY-US202401011104

PATIENT
  Age: 53 Year
  Sex: Female

DRUGS (2)
  1. MOUNJARO [Suspect]
     Active Substance: TIRZEPATIDE
     Indication: Glucose tolerance impaired
     Dosage: UNK UNK, UNKNOWN
     Route: 065
     Dates: start: 202208, end: 20231204
  2. MOUNJARO [Suspect]
     Active Substance: TIRZEPATIDE
     Indication: Weight decreased

REACTIONS (9)
  - Weight increased [Unknown]
  - Depressed mood [Unknown]
  - Vertigo [Unknown]
  - Mood swings [Unknown]
  - Insomnia [Unknown]
  - Food craving [Unknown]
  - Neuropathy peripheral [Unknown]
  - Off label use [Unknown]
  - Abdominal discomfort [Unknown]
